FAERS Safety Report 5261226-0 (Version None)
Quarter: 2007Q1

REPORT INFORMATION
  Report Type: 
  Country: None (occurrence: None)
  Receive Date: 20070309
  Receipt Date: 20070227
  Transmission Date: 20070707
  Serious: Yes (Hospitalization, Other)
  Sender: FDA-Public Use
  Company Number: US-PFIZER INC-2007016058

PATIENT
  Sex: Female
  Weight: 78.5 kg

DRUGS (1)
  1. CHANTIX [Suspect]
     Indication: SMOKING CESSATION THERAPY
     Dates: start: 20070125, end: 20070201

REACTIONS (3)
  - CROHN'S DISEASE [None]
  - GALLBLADDER DISORDER [None]
  - WEIGHT DECREASED [None]
